FAERS Safety Report 13468351 (Version 1)
Quarter: 2017Q2

REPORT INFORMATION
  Report Type: Spontaneous
  Country: CN (occurrence: CN)
  Receive Date: 20170421
  Receipt Date: 20170421
  Transmission Date: 20170830
  Serious: Yes (Hospitalization)
  Sender: FDA-Public Use
  Company Number: CN-PFIZER INC-2017163440

PATIENT
  Age: 38 Year
  Sex: Male

DRUGS (1)
  1. LIPITOR [Suspect]
     Active Substance: ATORVASTATIN CALCIUM
     Dosage: 20 MG, 1X/DAY (IN THE EVENING)
     Route: 048

REACTIONS (3)
  - Cerebral infarction [Unknown]
  - Condition aggravated [Unknown]
  - Hyperglycaemia [Unknown]
